FAERS Safety Report 13075220 (Version 2)
Quarter: 2017Q1

REPORT INFORMATION
  Report Type: Spontaneous
  Country: US (occurrence: US)
  Receive Date: 20161230
  Receipt Date: 20170116
  Transmission Date: 20170428
  Serious: No
  Sender: FDA-Public Use
  Company Number: US-VERTEX PHARMACEUTICALS-2016-007289

PATIENT
  Age: 18 Year
  Sex: Female

DRUGS (15)
  1. MULTIVITAMIN [Concomitant]
     Active Substance: VITAMINS
  2. URSODIOL. [Concomitant]
     Active Substance: URSODIOL
  3. ERYTHROCIN [Concomitant]
     Active Substance: ERYTHROMYCIN LACTOBIONATE
  4. CAYSTON [Concomitant]
     Active Substance: AZTREONAM
  5. FLUTICASONE. [Concomitant]
     Active Substance: FLUTICASONE
  6. PROVENTIL [Concomitant]
     Active Substance: ALBUTEROL
  7. SALINE [Concomitant]
     Active Substance: SODIUM CHLORIDE
  8. MIRALAX [Concomitant]
     Active Substance: POLYETHYLENE GLYCOL 3350
  9. FLONASE [Concomitant]
     Active Substance: FLUTICASONE PROPIONATE
  10. VORTEX [Concomitant]
     Active Substance: SODIUM FLUORIDE
  11. SODIUM [Concomitant]
     Active Substance: SODIUM
  12. ORKAMBI [Suspect]
     Active Substance: IVACAFTOR\LUMACAFTOR
     Indication: CYSTIC FIBROSIS
     Dosage: 2 DF (400-250 MG), BID
     Route: 048
     Dates: start: 20150915
  13. VITAMIN D3 [Concomitant]
     Active Substance: CHOLECALCIFEROL
  14. CREON [Concomitant]
     Active Substance: PANCRELIPASE AMYLASE\PANCRELIPASE LIPASE\PANCRELIPASE PROTEASE
  15. AZITHROMYCIN ANHYDROUS. [Concomitant]
     Active Substance: AZITHROMYCIN ANHYDROUS

REACTIONS (1)
  - Nasopharyngitis [Recovered/Resolved]

NARRATIVE: CASE EVENT DATE: 201611
